FAERS Safety Report 18802401 (Version 2)
Quarter: 2021Q1

REPORT INFORMATION
  Report Type: Report from Study
  Country: DE (occurrence: DE)
  Receive Date: 20210128
  Receipt Date: 20210129
  Transmission Date: 20210419
  Serious: Yes (Hospitalization, Other)
  Sender: FDA-Public Use
  Company Number: DE-GLAXOSMITHKLINE-DE2021EME016443

PATIENT
  Sex: Male

DRUGS (1)
  1. BELIMUMAB [Suspect]
     Active Substance: BELIMUMAB
     Indication: SYSTEMIC LUPUS ERYTHEMATOSUS
     Dosage: 200 MG, WE, ONE WEEKLY

REACTIONS (6)
  - Joint swelling [Recovering/Resolving]
  - Therapeutic response unexpected [Unknown]
  - Erythema [Recovering/Resolving]
  - Systemic lupus erythematosus [Not Recovered/Not Resolved]
  - Arthralgia [Recovering/Resolving]
  - Condition aggravated [Unknown]
